FAERS Safety Report 17112249 (Version 1)
Quarter: 2019Q4

REPORT INFORMATION
  Report Type: Spontaneous
  Country: US (occurrence: US)
  Receive Date: 20191111
  Receipt Date: 20191111
  Transmission Date: 20200122
  Serious: Yes (Hospitalization)
  Sender: FDA-Public Use
  Company Number: None

PATIENT
  Age: 87 Year
  Sex: Female

DRUGS (24)
  1. CARVEDILOL. [Concomitant]
     Active Substance: CARVEDILOL
  2. DILTIAZEM ER [Concomitant]
     Active Substance: DILTIAZEM
  3. EZETIMIBE. [Concomitant]
     Active Substance: EZETIMIBE
  4. VIRTUSSIN AC [Concomitant]
     Active Substance: CODEINE PHOSPHATE\GUAIFENESIN
  5. IBUPROFEN. [Concomitant]
     Active Substance: IBUPROFEN
  6. LOSARTAN POT [Concomitant]
     Active Substance: LOSARTAN POTASSIUM
  7. PREDNISONE. [Concomitant]
     Active Substance: PREDNISONE
  8. ALBUTEROL 0.083% [Concomitant]
     Active Substance: ALBUTEROL
  9. ASPIRIN -LOW DOSE [Concomitant]
  10. ELIQUIS [Concomitant]
     Active Substance: APIXABAN
  11. FUORSEMIDE [Concomitant]
  12. METHYLPRED [Concomitant]
     Active Substance: METHYLPREDNISOLONE
  13. BUMETANIDEM [Concomitant]
  14. ATORVASTATIN [Concomitant]
     Active Substance: ATORVASTATIN
  15. CLOPIDOGREL [Concomitant]
     Active Substance: CLOPIDOGREL BISULFATE
  16. TRAMADOL. [Concomitant]
     Active Substance: TRAMADOL
  17. TOBRAMYCIN 300MG/5 ML NEB. SLN [Suspect]
     Active Substance: TOBRAMYCIN
     Indication: BRONCHIECTASIS
     Route: 055
     Dates: start: 20160502
  18. AZITHROMYCIN ANHYDROUS. [Concomitant]
     Active Substance: AZITHROMYCIN ANHYDROUS
  19. NYSTATIN SUSP [Concomitant]
  20. CEFDINIR. [Concomitant]
     Active Substance: CEFDINIR
  21. METOLAZONE. [Concomitant]
     Active Substance: METOLAZONE
  22. IPRATROPIUM/ALBUTEROL [Concomitant]
     Active Substance: ALBUTEROL\IPRATROPIUM
  23. CLOTRIM/BETA CM [Concomitant]
  24. DOXYCYCLINE. [Concomitant]
     Active Substance: DOXYCYCLINE

REACTIONS (4)
  - Infection [None]
  - Atrial fibrillation [None]
  - Fall [None]
  - Skin laceration [None]

NARRATIVE: CASE EVENT DATE: 20191102
